FAERS Safety Report 8333987-5 (Version None)
Quarter: 2012Q1

REPORT INFORMATION
  Report Type: 
  Country: None (occurrence: None)
  Receive Date: 20120328
  Receipt Date: 20110119
  Transmission Date: 20120608
  Serious: Yes (Hospitalization)
  Sender: FDA-Public Use
  Company Number: PHHY2011US04789

PATIENT
  Age: 86 Year
  Sex: Female

DRUGS (6)
  1. ATENOLOL [Concomitant]
  2. VALTURNA [Suspect]
     Indication: HYPERTENSION
     Dosage: 320 MG OF VALS AND 300 MG OF ALISK, ORAL
     Route: 048
     Dates: start: 20110117, end: 20110118
  3. DRUG THERAPY NOS (DRUG THERAPY NOS) [Concomitant]
  4. CLONIDINE [Concomitant]
  5. TEKTURNA [Suspect]
     Dosage: 150 MG
  6. DIOVAN [Suspect]
     Dosage: 320 MG

REACTIONS (5)
  - DYSPNOEA [None]
  - INSOMNIA [None]
  - DIZZINESS [None]
  - PALPITATIONS [None]
  - DIARRHOEA [None]
